FAERS Safety Report 8352005-6 (Version None)
Quarter: 2012Q2

REPORT INFORMATION
  Report Type: 
  Country: None (occurrence: None)
  Receive Date: 20120509
  Receipt Date: 20120424
  Transmission Date: 20120825
  Serious: Yes (Hospitalization, Other)
  Sender: FDA-Public Use
  Company Number: 2012P1019623

PATIENT
  Age: 29 Year
  Sex: Male

DRUGS (21)
  1. COLISTIN SULFATE [Suspect]
     Indication: PSEUDOMONAS INFECTION
     Dates: start: 20120406
  2. PEGZEREPOETIN ALFA [Concomitant]
  3. NA POLYSTYRENE SULFONATE [Concomitant]
  4. AZITHROMYCIN [Concomitant]
  5. POSACONAZOLE [Concomitant]
  6. VALACICLOVIR HYDROCHLORID [Concomitant]
  7. PANCREATIN TRIPLE STRENGTH CAP [Concomitant]
  8. COLECALCIFEROL [Concomitant]
  9. BISOPROLOL FUMARATE [Concomitant]
  10. PRAVASTATIN [Concomitant]
  11. ESOMEPRAZOLE MAGNESIUM [Concomitant]
  12. COTRIM [Concomitant]
  13. OROCAL VIT D3 [Concomitant]
  14. PREDNISONE TAB [Concomitant]
  15. ACETYLCYSTEINE [Concomitant]
  16. MYCOPHENOLATE MOFETIL [Concomitant]
  17. TACROLIMUS [Concomitant]
  18. LINEZOLID [Concomitant]
  19. DOMPERIDONE [Concomitant]
  20. CEFTAZIDIME [Suspect]
     Indication: PSEUDOMONAS INFECTION
     Dates: start: 20120406
  21. OLICLINOMEL [Concomitant]

REACTIONS (6)
  - CONFUSIONAL STATE [None]
  - RENAL FAILURE [None]
  - ACUTE RESPIRATORY DISTRESS SYNDROME [None]
  - OVERDOSE [None]
  - CONDITION AGGRAVATED [None]
  - HYPOTENSION [None]
